FAERS Safety Report 11910217 (Version 1)
Quarter: 2016Q1

REPORT INFORMATION
  Report Type: Spontaneous
  Country: US (occurrence: US)
  Receive Date: 20160112
  Receipt Date: 20160112
  Transmission Date: 20160526
  Serious: No
  Sender: FDA-Public Use
  Company Number: US-PFIZER INC-2015477639

PATIENT
  Age: 52 Year
  Sex: Male
  Weight: 104 kg

DRUGS (3)
  1. BENAZEPRIL-HCTZ [Concomitant]
     Indication: BLOOD PRESSURE ABNORMAL
     Dosage: 25 MG [BENAZEPRIL]/[HYDROCHLOROTHIAZIDE], 1X/DAY
  2. PLAVIX [Concomitant]
     Active Substance: CLOPIDOGREL BISULFATE
     Indication: PROPHYLAXIS
     Dosage: 75 MG, 1X/DAY
  3. LYRICA [Suspect]
     Active Substance: PREGABALIN
     Indication: DIABETIC NEUROPATHY
     Dosage: 150 MG, TWICE A DAY
     Route: 048
     Dates: start: 2014

REACTIONS (3)
  - Paraesthesia [Not Recovered/Not Resolved]
  - Pain in extremity [Recovered/Resolved]
  - Swelling [Unknown]

NARRATIVE: CASE EVENT DATE: 20151229
